FAERS Safety Report 5212758-2 (Version None)
Quarter: 2006Q4

REPORT INFORMATION
  Report Type: 
  Country: None (occurrence: None)
  Receive Date: 20061115
  Receipt Date: 20060727
  Transmission Date: 20070319
  Serious: No
  Sender: FDA-Public Use
  Company Number: 200611407BWH

PATIENT
  Age: 74 Year
  Sex: Female
  Weight: 65.7716 kg

DRUGS (1)
  1. NEXAVAR [Suspect]
     Indication: RENAL CELL CARCINOMA STAGE UNSPECIFIED
     Dosage: ORAL
     Route: 048
     Dates: start: 20060126, end: 20060303

REACTIONS (5)
  - HYPOTENSION [None]
  - JOINT SWELLING [None]
  - PYREXIA [None]
  - RASH GENERALISED [None]
  - WEIGHT DECREASED [None]
